FAERS Safety Report 18212324 (Version 5)
Quarter: 2020Q4

REPORT INFORMATION
  Report Type: Report from Study
  Country: CO (occurrence: CO)
  Receive Date: 20200831
  Receipt Date: 20201204
  Transmission Date: 20210113
  Serious: Yes (Other)
  Sender: FDA-Public Use
  Company Number: NVSC2020CO235523

PATIENT
  Sex: Female
  Weight: 40 kg

DRUGS (4)
  1. REVOLADE [Suspect]
     Active Substance: ELTROMBOPAG
     Dosage: 25 MG
     Route: 048
  2. REVOLADE [Suspect]
     Active Substance: ELTROMBOPAG
     Dosage: 75 MG, QD
     Route: 048
  3. REVOLADE [Suspect]
     Active Substance: ELTROMBOPAG
     Dosage: 50 MG, QD
     Route: 048
     Dates: end: 202002
  4. REVOLADE [Suspect]
     Active Substance: ELTROMBOPAG
     Indication: IMMUNE THROMBOCYTOPENIA
     Dosage: 50 MG
     Route: 048

REACTIONS (21)
  - Haemophilia [Unknown]
  - Depressed mood [Recovered/Resolved]
  - Limb discomfort [Unknown]
  - Vomiting [Unknown]
  - Fluid retention [Unknown]
  - Haemorrhage [Unknown]
  - Urinary tract infection [Unknown]
  - Condition aggravated [Unknown]
  - Thrombocytopenia [Unknown]
  - Contusion [Unknown]
  - Anxiety [Unknown]
  - Feeling abnormal [Recovered/Resolved]
  - Eating disorder [Recovered/Resolved]
  - Depression [Unknown]
  - Dizziness [Unknown]
  - Insomnia [Unknown]
  - Urine abnormality [Unknown]
  - Systemic lupus erythematosus [Unknown]
  - Syncope [Unknown]
  - Product supply issue [Unknown]
  - Platelet count decreased [Unknown]
